FAERS Safety Report 15982416 (Version 1)
Quarter: 2019Q1

REPORT INFORMATION
  Report Type: Spontaneous
  Country: US (occurrence: US)
  Receive Date: 20190219
  Receipt Date: 20190219
  Transmission Date: 20190418
  Serious: No
  Sender: FDA-Public Use
  Company Number: US-ENDO PHARMACEUTICALS INC-2018-025949

PATIENT
  Age: 70 Year
  Sex: Female

DRUGS (1)
  1. XIAFLEX [Suspect]
     Active Substance: COLLAGENASE CLOSTRIDIUM HISTOLYTICUM
     Indication: DUPUYTREN^S CONTRACTURE
     Dosage: INJECTION IN THE RING FINGER, MIDDLE FINGER, POINTER FINGER ON UNKNOWN HAND, IN PIP JOINT
     Route: 026
     Dates: start: 2017

REACTIONS (4)
  - Drug ineffective [Unknown]
  - Injection site hypoaesthesia [Unknown]
  - Injection site pain [Unknown]
  - Injection site swelling [Unknown]

NARRATIVE: CASE EVENT DATE: 2017
